FAERS Safety Report 8527842-5 (Version None)
Quarter: 2012Q3

REPORT INFORMATION
  Report Type: 
  Country: None (occurrence: None)
  Receive Date: 20120721
  Receipt Date: 20120713
  Transmission Date: 20120928
  Serious: Yes (Death, Hospitalization)
  Sender: FDA-Public Use
  Company Number: US-MPIJNJ-2011-06312

PATIENT
  Sex: Male
  Weight: 87.664 kg

DRUGS (11)
  1. DECADRON [Concomitant]
     Indication: PROPHYLACTIC CHEMOTHERAPY
     Dosage: 40 MG, UNK
     Route: 042
     Dates: start: 20110513
  2. VICODIN [Concomitant]
     Indication: PAIN
     Dosage: UNK
  3. COUMADIN [Concomitant]
     Indication: PRODUCT USED FOR UNKNOWN INDICATION
     Dosage: 3 MG, 3/WEEK
  4. DULCOLAX [Concomitant]
     Indication: PRODUCT USED FOR UNKNOWN INDICATION
     Dosage: 100 MG, BID
  5. FENTANYL [Concomitant]
     Indication: PRODUCT USED FOR UNKNOWN INDICATION
     Dosage: 50 UG, UNK
  6. VELCADE [Suspect]
     Indication: MULTIPLE MYELOMA
     Dosage: 1.3 MG, 1/WEEK
     Route: 042
     Dates: start: 20110517
  7. POLYETHYLENE GLYCOL [Concomitant]
     Indication: PRODUCT USED FOR UNKNOWN INDICATION
     Dosage: 17 G, QD
  8. FLEET ENEMA                        /00103901/ [Concomitant]
     Indication: PRODUCT USED FOR UNKNOWN INDICATION
     Dosage: UNK
  9. ZOMETA [Suspect]
     Indication: BONE LOSS
     Dosage: 2 MG, UNK
     Route: 042
     Dates: start: 20110513
  10. DIGOXIN [Concomitant]
     Indication: ATRIAL FIBRILLATION
     Dosage: 0.125 MG, QD
  11. DEXAMETHASONE [Concomitant]
     Indication: PRODUCT USED FOR UNKNOWN INDICATION
     Dosage: 4 MG, BID
     Route: 048

REACTIONS (9)
  - HYPONATRAEMIA [None]
  - ASTHENIA [None]
  - DIZZINESS [None]
  - HYPOCALCAEMIA [None]
  - DEHYDRATION [None]
  - FALL [None]
  - HAEMOPTYSIS [None]
  - HYPOTENSION [None]
  - PNEUMONIA [None]
